FAERS Safety Report 5712315-5 (Version None)
Quarter: 2008Q2

REPORT INFORMATION
  Report Type: 
  Country: None (occurrence: None)
  Receive Date: 20080417
  Receipt Date: 20080128
  Transmission Date: 20081010
  Serious: Yes (Hospitalization)
  Sender: FDA-Public Use
  Company Number: TRP_05637_2008

PATIENT
  Sex: Female
  Weight: 68.9467 kg

DRUGS (8)
  1. RIBAVIRIN [Suspect]
     Indication: HEPATITIS C
     Dosage: 1000 MG [400 MG + 600 MG] DAILY ORAL
     Route: 048
     Dates: start: 20071207, end: 20080101
  2. INFERGEN [Suspect]
     Indication: HEPATITIS C
     Dosage: 15 ?G QD SUBCUTANEOUS
     Route: 058
     Dates: start: 20071207, end: 20080101
  3. RIBAVIRIN [Suspect]
     Indication: HEPATITIS C
     Dosage: 1000 MG[400 MG + 600 MG] DAILY ORAL
     Route: 048
     Dates: start: 20080128
  4. INFERGEN [Suspect]
     Indication: HEPATITIS C
     Dosage: 15 ?G QD SUBCUTANEOUS
     Route: 058
     Dates: start: 20080128
  5. PHENERGAN [Concomitant]
  6. CELEXA [Concomitant]
  7. CLARITIN [Concomitant]
  8. HYDROCODONE BITARTRATE [Concomitant]

REACTIONS (2)
  - NASOPHARYNGITIS [None]
  - PNEUMONIA [None]
